FAERS Safety Report 25606598 (Version 1)
Quarter: 2025Q3

REPORT INFORMATION
  Report Type: Spontaneous
  Country: US (occurrence: US)
  Receive Date: 20250725
  Receipt Date: 20250725
  Transmission Date: 20251021
  Serious: Yes (Death, Hospitalization)
  Sender: AMGEN
  Company Number: US-AMGEN-USASP2025141275

PATIENT
  Age: 72 Year
  Sex: Female

DRUGS (3)
  1. PREDNISONE [Suspect]
     Active Substance: PREDNISONE
     Indication: Pulmonary alveolar haemorrhage
     Route: 065
  2. CEFEPIME [Concomitant]
     Active Substance: CEFEPIME HYDROCHLORIDE
     Route: 065
  3. VANCOMYCIN [Concomitant]
     Active Substance: VANCOMYCIN

REACTIONS (10)
  - Pneumonia fungal [Fatal]
  - Haemorrhagic pneumonia [Fatal]
  - Encephalopathy [Unknown]
  - Acute kidney injury [Unknown]
  - Renal failure [Unknown]
  - Respiratory failure [Unknown]
  - Lactic acidosis [Unknown]
  - Shock [Unknown]
  - Embolism [Unknown]
  - Hepatic necrosis [Unknown]
